FAERS Safety Report 26187544 (Version 1)
Quarter: 2025Q4

REPORT INFORMATION
  Report Type: Spontaneous
  Country: EU (occurrence: EU)
  Receive Date: 20251222
  Receipt Date: 20251222
  Transmission Date: 20260117
  Serious: Yes (Hospitalization, Other)
  Sender: SANOFI AVENTIS
  Company Number: None

PATIENT
  Age: 75 Year
  Sex: Male

DRUGS (22)
  1. RIFATER [Suspect]
     Active Substance: ISONIAZID\PYRAZINAMIDE\RIFAMPIN
     Indication: Pulmonary tuberculosis
     Dosage: STRENGHT: 50 MG/120 MG/300 MGDOSING: 6 TBL/DAY, AT FIRST THE PATIENT RECIVED RIFATER
     Route: 048
     Dates: start: 20251018, end: 20251107
  2. ISONIAZID\RIFAMPIN [Suspect]
     Active Substance: ISONIAZID\RIFAMPIN
     Indication: Pulmonary tuberculosis
     Dosage: STRENGHT: 300 MG/150 MG DOSING: 2 TBL/DAY, THEN THE PATIENT RECEIVED RIFINAH
     Route: 048
     Dates: start: 20251018, end: 20251107
  3. PYRAZINAMIDE [Concomitant]
     Active Substance: PYRAZINAMIDE
     Dosage: STRENGHT: 500 MGDOSEING: 1500 MG
     Route: 048
  4. Emb fatol [Concomitant]
     Dosage: STRENGHT: 400 MGDOSEING: 800 MG
     Route: 048
  5. ROSUVASTATIN CALCIUM [Concomitant]
     Active Substance: ROSUVASTATIN CALCIUM
     Dosage: 30 MG
     Route: 048
  6. PANTOPRAZOLE SODIUM [Concomitant]
     Active Substance: PANTOPRAZOLE SODIUM
     Dosage: 2X1
     Route: 048
  7. BISOPROLOL FUMARATE [Concomitant]
     Active Substance: BISOPROLOL FUMARATE
     Dosage: 1.25 MG
     Route: 048
  8. ASPIRIN [Concomitant]
     Active Substance: ASPIRIN
     Dosage: 100 MG
     Route: 048
  9. Analgin [Concomitant]
     Dosage: 3X/DAY
     Route: 048
  10. XANAX [Concomitant]
     Active Substance: ALPRAZOLAM
     Dosage: 1X/DAY + 1X IF NECESSARY
     Route: 048
  11. CALCIUM POLYSTYRENE SULFONATE [Concomitant]
     Active Substance: CALCIUM POLYSTYRENE SULFONATE
     Dosage: STRENGHT: 14,96 G/15 GDOSING: 15 G 1X/DAY
     Route: 048
  12. VITAMIN B6 [Concomitant]
     Active Substance: PYRIDOXINE HYDROCHLORIDE
     Dosage: 20 MG 1X/DAY
  13. REGLAN [Concomitant]
     Active Substance: METOCLOPRAMIDE HYDROCHLORIDE
     Dosage: 3X/DAY
     Route: 048
  14. DIBUCAINE\POLICRESULEN [Concomitant]
     Active Substance: DIBUCAINE\POLICRESULEN
     Dosage: STRENGHT: 2,5 MG/100 MG
     Route: 054
  15. DIBUCAINE\POLICRESULEN [Concomitant]
     Active Substance: DIBUCAINE\POLICRESULEN
     Dosage: STRENGHT: 20 MG/50 MG IN 1 G
     Route: 054
  16. Dulcolax [Concomitant]
     Dosage: 10 MG
     Route: 054
  17. DOPAMINE [Concomitant]
     Active Substance: DOPAMINE HYDROCHLORIDE
     Dosage: UNK
     Route: 042
  18. IONOLYTE [ELECTROLYTES NOS] [Concomitant]
     Dosage: UNK
     Route: 042
  19. PIPERACILLIN SODIUM\TAZOBACTAM SODIUM [Concomitant]
     Active Substance: PIPERACILLIN SODIUM\TAZOBACTAM SODIUM
     Dosage: 4.5 G, Q8H
     Route: 042
  20. TRAMADOL [Concomitant]
     Active Substance: TRAMADOL
     Dosage: STRENGHT: 50 MG/ML DOSING: 50MG/8H
     Route: 042
  21. FUROSEMIDE [Concomitant]
     Active Substance: FUROSEMIDE
     Dosage: STRENGHT: 10 MG/ML DOSING: 20 MG + 40 MG
     Route: 042
  22. SODIUM CHLORIDE [Concomitant]
     Active Substance: SODIUM CHLORIDE
     Dosage: UNK
     Route: 042

REACTIONS (6)
  - Procalcitonin increased [Recovered/Resolved]
  - Abdominal pain [Recovered/Resolved]
  - Amylase increased [Recovered/Resolved]
  - Lipase increased [Recovered/Resolved]
  - Nausea [Recovered/Resolved]
  - Pancreatitis [Recovered/Resolved]

NARRATIVE: CASE EVENT DATE: 20251107
